FAERS Safety Report 8596163 (Version 2)
Quarter: 2014Q1

REPORT INFORMATION
  Report Type: Spontaneous
  Country: US (occurrence: US)
  Receive Date: 20120605
  Receipt Date: 20140109
  Transmission Date: 20141002
  Serious: No
  Sender: FDA-Public Use
  Company Number: US-ASTRAZENECA-2012SE34761

PATIENT
  Age: 55 Year
  Sex: Female

DRUGS (25)
  1. NEXIUM [Suspect]
     Indication: GASTROOESOPHAGEAL REFLUX DISEASE
     Dosage: TWO TIMES DAILY
     Route: 048
  2. NEXIUM [Suspect]
     Indication: GASTROOESOPHAGEAL REFLUX DISEASE
     Route: 048
     Dates: end: 2010
  3. NEXIUM [Suspect]
     Indication: GASTROOESOPHAGEAL REFLUX DISEASE
     Route: 048
     Dates: start: 20090715
  4. OMEPRAZOLE [Suspect]
     Route: 048
  5. OMEPRAZOLE [Suspect]
     Route: 048
     Dates: start: 20090115
  6. PREVACID [Concomitant]
     Indication: GASTROOESOPHAGEAL REFLUX DISEASE
     Dosage: TWO TIMES DAILY
  7. ZANTAC [Concomitant]
     Dosage: TWO TIMES DAILY
  8. ALKA-SELTZER [Concomitant]
  9. PEPTO-BISMOL [Concomitant]
  10. MILK OF MAGNESIA [Concomitant]
  11. MYLANTA [Concomitant]
  12. HYDROCODONE [Concomitant]
     Indication: PAIN
  13. BISOPROLOL [Concomitant]
     Indication: BLOOD PRESSURE
  14. PANTOPRAZOLE [Concomitant]
     Indication: GASTROOESOPHAGEAL REFLUX DISEASE
  15. AMOXICILLIN [Concomitant]
     Indication: INFECTION
  16. VITAMIN D [Concomitant]
     Indication: BONE LOSS
  17. VITAMIN D [Concomitant]
     Indication: VISUAL IMPAIRMENT
  18. PROCTOFOAM [Concomitant]
     Indication: HAEMORRHOIDS
  19. TRIAMTERENE [Concomitant]
     Indication: FLUID RETENTION
  20. SERTRALINE [Concomitant]
     Dates: start: 20090424
  21. VESICARE [Concomitant]
     Dates: start: 20100413
  22. LISINOPRIL/HCTZ [Concomitant]
     Dosage: 10/6.25 MG DAILY
     Dates: start: 20100413
  23. CYCLOBENZAPRINE [Concomitant]
     Indication: MUSCLE RELAXANT THERAPY
     Dates: start: 20070226
  24. PAXIL [Concomitant]
     Dates: start: 20030915
  25. METOCLOPRAMIDE [Concomitant]
     Dosage: 10 MG HALF TAB 2 TO 4 TIMES A DAY AS NEEDED
     Dates: start: 20070516

REACTIONS (8)
  - Chest pain [Unknown]
  - Osteoporosis [Unknown]
  - Multiple fractures [Unknown]
  - Carpal tunnel syndrome [Unknown]
  - Intervertebral disc protrusion [Unknown]
  - Glaucoma [Unknown]
  - Vitamin D deficiency [Unknown]
  - Muscular weakness [Unknown]
